FAERS Safety Report 9242566 (Version 1)
Quarter: 2013Q2

REPORT INFORMATION
  Report Type: Spontaneous
  Country: FR (occurrence: FR)
  Receive Date: 20130419
  Receipt Date: 20130419
  Transmission Date: 20140414
  Serious: Yes (Hospitalization)
  Sender: FDA-Public Use
  Company Number: FR-ELI_LILLY_AND_COMPANY-FR201304002599

PATIENT
  Age: 33 Year
  Sex: Female

DRUGS (8)
  1. CYMBALTA [Suspect]
     Dosage: 60 MG, QD
     Route: 048
     Dates: start: 20130226, end: 20130226
  2. LEVOCETIRIZINE [Concomitant]
     Dosage: 5 MG, QD
     Dates: start: 20130218, end: 20130318
  3. NASONEX [Concomitant]
     Dosage: UNK, UNKNOWN
  4. ANTIBIO-SYNALAR [Concomitant]
     Dosage: UNK, UNKNOWN
  5. AMOXI-CLAVULAN [Concomitant]
     Dosage: UNK, UNKNOWN
  6. DOLIPRANE [Concomitant]
     Dosage: UNK, UNKNOWN
  7. ASPEGIC [Concomitant]
     Dosage: UNK, UNKNOWN
  8. OFLOCET [Concomitant]
     Dosage: UNK, UNKNOWN

REACTIONS (10)
  - Agitation [Recovered/Resolved]
  - Nightmare [Recovered/Resolved]
  - Nausea [Recovered/Resolved]
  - Vomiting [Recovered/Resolved]
  - Asthenia [Recovered/Resolved]
  - Headache [Recovered/Resolved]
  - Myalgia [Not Recovered/Not Resolved]
  - Hypertonia [Recovered/Resolved]
  - Abnormal dreams [Recovered/Resolved]
  - Extremity contracture [Recovered/Resolved]
